FAERS Safety Report 6289095-0 (Version None)
Quarter: 2009Q3

REPORT INFORMATION
  Report Type: 
  Country: None (occurrence: None)
  Receive Date: 20090729
  Receipt Date: 20090720
  Transmission Date: 20100115
  Serious: No
  Sender: FDA-Public Use
  Company Number: DE-ASTRAZENECA-2009SE05145

PATIENT
  Age: 20 Year
  Sex: Male

DRUGS (3)
  1. SEROQUEL XR [Suspect]
     Indication: GENERALISED ANXIETY DISORDER
     Route: 048
     Dates: start: 20090101
  2. LYRIKA [Concomitant]
     Route: 065
  3. CYMBALTA [Concomitant]
     Route: 065

REACTIONS (1)
  - NEUTROPENIA [None]
